FAERS Safety Report 14763356 (Version 16)
Quarter: 2025Q3

REPORT INFORMATION
  Report Type: Report from Study
  Country: CA (occurrence: CA)
  Receive Date: 20180416
  Receipt Date: 20250714
  Transmission Date: 20251020
  Serious: Yes (Other)
  Sender: NOVARTIS
  Company Number: PHHY2018CA031981

PATIENT
  Sex: Female
  Weight: 109 kg

DRUGS (22)
  1. COSENTYX [Suspect]
     Active Substance: SECUKINUMAB
     Indication: Psoriatic arthropathy
     Route: 058
     Dates: start: 20171208
  2. COSENTYX [Suspect]
     Active Substance: SECUKINUMAB
     Dosage: 300 MG, QMO
     Route: 058
     Dates: start: 20180305
  3. COSENTYX [Suspect]
     Active Substance: SECUKINUMAB
     Route: 065
     Dates: start: 20180319
  4. COSENTYX [Suspect]
     Active Substance: SECUKINUMAB
     Route: 065
     Dates: start: 20180503
  5. COSENTYX [Suspect]
     Active Substance: SECUKINUMAB
     Route: 058
  6. COSENTYX [Suspect]
     Active Substance: SECUKINUMAB
     Route: 058
     Dates: start: 20181129
  7. COSENTYX [Suspect]
     Active Substance: SECUKINUMAB
     Route: 058
     Dates: start: 20200910
  8. REMICADE [Concomitant]
     Active Substance: INFLIXIMAB
     Indication: Product used for unknown indication
     Route: 065
  9. ENBREL [Concomitant]
     Active Substance: ETANERCEPT
     Indication: Product used for unknown indication
     Route: 065
  10. PREDNISONE [Concomitant]
     Active Substance: PREDNISONE
     Indication: Product used for unknown indication
     Route: 065
  11. PERCOCET [Concomitant]
     Active Substance: ACETAMINOPHEN\OXYCODONE HYDROCHLORIDE
     Indication: Product used for unknown indication
     Route: 065
  12. Tylenol with codeine no. 2 [Concomitant]
     Indication: Product used for unknown indication
     Dosage: UNK UNK, BID
     Route: 065
  13. IMURAN [Concomitant]
     Active Substance: AZATHIOPRINE
     Indication: Product used for unknown indication
     Route: 065
  14. CORTISONE [Concomitant]
     Active Substance: CORTISONE
     Indication: Product used for unknown indication
     Route: 065
  15. METHOTREXATE [Concomitant]
     Active Substance: METHOTREXATE
     Indication: Product used for unknown indication
     Route: 065
  16. LEFLUNOMIDE [Concomitant]
     Active Substance: LEFLUNOMIDE
     Indication: Product used for unknown indication
     Route: 065
  17. VOLTAREN [Concomitant]
     Active Substance: DICLOFENAC SODIUM
     Indication: Product used for unknown indication
     Route: 061
     Dates: start: 2020
  18. CLONAZEPAM [Concomitant]
     Active Substance: CLONAZEPAM
     Indication: Product used for unknown indication
     Route: 048
  19. AVAPRO [Concomitant]
     Active Substance: IRBESARTAN
     Indication: Product used for unknown indication
     Route: 048
  20. INDOMETHACIN [Concomitant]
     Active Substance: INDOMETHACIN
     Indication: Product used for unknown indication
     Route: 048
  21. DICLOFENAC [Concomitant]
     Active Substance: DICLOFENAC
     Indication: Product used for unknown indication
     Route: 061
  22. DICLOFENAC [Concomitant]
     Active Substance: DICLOFENAC
     Indication: Product used for unknown indication
     Route: 048
     Dates: start: 2020

REACTIONS (19)
  - Blood pressure fluctuation [Unknown]
  - Psoriatic arthropathy [Unknown]
  - Arthralgia [Unknown]
  - Joint swelling [Unknown]
  - Muscular weakness [Unknown]
  - Pain in extremity [Unknown]
  - Inflammation [Unknown]
  - Heart rate increased [Unknown]
  - Hypoaesthesia [Recovered/Resolved]
  - Alopecia [Unknown]
  - Arthralgia [Unknown]
  - Movement disorder [Unknown]
  - Dysstasia [Unknown]
  - Nasopharyngitis [Unknown]
  - Psoriasis [Unknown]
  - Oedema peripheral [Unknown]
  - Inappropriate schedule of product administration [Unknown]
  - Drug ineffective [Unknown]
  - Therapeutic product effect incomplete [Unknown]

NARRATIVE: CASE EVENT DATE: 20180601
